FAERS Safety Report 21609206 (Version 2)
Quarter: 2023Q1

REPORT INFORMATION
  Report Type: Report from Study
  Country: US (occurrence: US)
  Receive Date: 20221117
  Receipt Date: 20230307
  Transmission Date: 20230418
  Serious: No
  Sender: FDA-Public Use
  Company Number: US-ABBVIE-4171193

PATIENT
  Age: 77 Year
  Sex: Male
  Weight: 112.94 kg

DRUGS (4)
  1. SKYRIZI [Suspect]
     Active Substance: RISANKIZUMAB-RZAA
     Indication: Crohn^s disease
     Route: 058
  2. SKYRIZI [Suspect]
     Active Substance: RISANKIZUMAB-RZAA
     Route: 050
  3. LOSARTAN [Concomitant]
     Active Substance: LOSARTAN
     Indication: Product used for unknown indication
  4. LEVOTHYROXINE [Concomitant]
     Active Substance: LEVOTHYROXINE
     Indication: Product used for unknown indication

REACTIONS (7)
  - Hot flush [Recovered/Resolved]
  - Wheezing [Unknown]
  - Cough [Unknown]
  - Fatigue [Recovered/Resolved]
  - Anger [Unknown]
  - Chest discomfort [Unknown]
  - Dysphonia [Unknown]

NARRATIVE: CASE EVENT DATE: 20220919
